FAERS Safety Report 13460612 (Version 1)
Quarter: 2017Q2

REPORT INFORMATION
  Report Type: Spontaneous
  Country: GB (occurrence: GB)
  Receive Date: 20170420
  Receipt Date: 20170420
  Transmission Date: 20170830
  Serious: Yes (Hospitalization)
  Sender: FDA-Public Use
  Company Number: GB-TORRENT-00015179

PATIENT
  Age: 29 Year
  Sex: Female

DRUGS (6)
  1. PREDNISOLONE. [Suspect]
     Active Substance: PREDNISOLONE
  2. MONTELUKAST [Suspect]
     Active Substance: MONTELUKAST SODIUM
  3. THEOPHYLLINE [Suspect]
     Active Substance: THEOPHYLLINE ANHYDROUS
  4. MAGNESIUM SULFATE. [Suspect]
     Active Substance: MAGNESIUM SULFATE
  5. SEVOFLURANE. [Suspect]
     Active Substance: SEVOFLURANE
  6. SALBUTAMOL [Suspect]
     Active Substance: ALBUTEROL

REACTIONS (1)
  - Therapy non-responder [Unknown]
